FAERS Safety Report 9639782 (Version 1)
Quarter: 2013Q4

REPORT INFORMATION
  Report Type: Spontaneous
  Country: US (occurrence: None)
  Receive Date: 20131021
  Receipt Date: 20131021
  Transmission Date: 20140711
  Serious: Yes (Other)
  Sender: FDA-Public Use
  Company Number: None

PATIENT
  Age: 64 Year
  Sex: Female
  Weight: 68.04 kg

DRUGS (1)
  1. PRAMIPEXOLE [Suspect]
     Indication: RESTLESS LEGS SYNDROME
     Route: 048
     Dates: start: 20131006, end: 20131016

REACTIONS (8)
  - Influenza like illness [None]
  - Nausea [None]
  - Pyrexia [None]
  - Lethargy [None]
  - Pain [None]
  - Decreased appetite [None]
  - Heart rate increased [None]
  - Drug ineffective [None]
